FAERS Safety Report 9538567 (Version 1)
Quarter: 2013Q2

REPORT INFORMATION
  Report Type: Spontaneous
  Country: US (occurrence: None)
  Receive Date: 20130507
  Receipt Date: 20130507
  Transmission Date: 20140414
  Serious: No
  Sender: FDA-Public Use
  Company Number: PHEH2012US025555

PATIENT
  Age: 22 Year
  Sex: Female

DRUGS (4)
  1. AFINITOR [Suspect]
     Indication: TUBEROUS SCLEROSIS
     Dosage: 5 MG, UNK, ORAL
     Route: 048
     Dates: start: 20121211
  2. KLONOPIN (CLONAZEPAM) (TABLETS) [Concomitant]
  3. DEPAKOTE (VALPROATE SEMISODIUM) [Concomitant]
  4. TRILEPTAL (OXCARBAZEPINE) [Concomitant]

REACTIONS (2)
  - Diarrhoea [None]
  - Fatigue [None]
